FAERS Safety Report 7151530-3 (Version None)
Quarter: 2010Q4

REPORT INFORMATION
  Report Type: 
  Country: None (occurrence: None)
  Receive Date: 20101210
  Receipt Date: 20101208
  Transmission Date: 20110411
  Serious: Yes (Hospitalization)
  Sender: FDA-Public Use
  Company Number: US-ROXANE LABORATORIES, INC.-2010-RO-01595RO

PATIENT
  Sex: Male
  Weight: 69 kg

DRUGS (11)
  1. PREDNISONE [Suspect]
     Indication: PROSTATE CANCER METASTATIC
     Dates: start: 20080305
  2. CIXUTUMUMAB [Suspect]
     Indication: PROSTATE CANCER METASTATIC
     Dosage: 359 MG
     Route: 042
     Dates: start: 20091118, end: 20100705
  3. MITOXANTRONE [Suspect]
     Indication: PROSTATE CANCER METASTATIC
     Dosage: 17 MG
     Route: 042
     Dates: start: 20091118, end: 20100705
  4. HYDROCHLOROTHIAZIDE [Concomitant]
  5. MULTI-VITAMIN [Concomitant]
  6. COMPAZINE [Concomitant]
     Dates: start: 20091118
  7. ZOMETA [Concomitant]
  8. SALINE [Concomitant]
     Route: 031
     Dates: start: 20091204
  9. TRELSTAR [Concomitant]
  10. MEGACE [Concomitant]
     Dates: start: 20100213
  11. TUMS [Concomitant]
     Dates: start: 20100303

REACTIONS (2)
  - DEHYDRATION [None]
  - PNEUMONIA [None]
